FAERS Safety Report 9887709 (Version 1)
Quarter: 2014Q1

REPORT INFORMATION
  Report Type: Spontaneous
  Country: ZA (occurrence: ZA)
  Receive Date: 20140211
  Receipt Date: 20140211
  Transmission Date: 20141002
  Serious: Yes (Other)
  Sender: FDA-Public Use
  Company Number: ZA-JNJFOC-20140202161

PATIENT
  Sex: Male
  Weight: 43 kg

DRUGS (1)
  1. RISPERLET [Suspect]
     Indication: PRODUCT USED FOR UNKNOWN INDICATION
     Route: 048
     Dates: start: 20130910, end: 20131101

REACTIONS (2)
  - Negativism [Recovered/Resolved]
  - Aggression [Recovered/Resolved]
